FAERS Safety Report 14849519 (Version 10)
Quarter: 2018Q2

REPORT INFORMATION
  Report Type: Report from Study
  Country: CA (occurrence: CA)
  Receive Date: 20180504
  Receipt Date: 20180628
  Transmission Date: 20180711
  Serious: Yes (Hospitalization, Other)
  Sender: FDA-Public Use
  Company Number: PHHY2014CA024973

PATIENT
  Age: 63 Year
  Sex: Male

DRUGS (20)
  1. TAMSULOSIN HYDROCHLORIDE. [Concomitant]
     Active Substance: TAMSULOSIN HYDROCHLORIDE
     Indication: PROSTATIC SPECIFIC ANTIGEN INCREASED
     Dosage: 0.4 MG, QD
     Route: 048
     Dates: start: 20170914
  2. TAMSULOSIN HYDROCHLORIDE. [Concomitant]
     Active Substance: TAMSULOSIN HYDROCHLORIDE
     Indication: BENIGN PROSTATIC HYPERPLASIA
     Dosage: 0.4 MG, QD
     Route: 065
     Dates: start: 20171204
  3. METHYLDOPA. [Concomitant]
     Active Substance: METHYLDOPA
     Indication: DYSPNOEA
     Dosage: 250 MG, QD
     Route: 065
     Dates: start: 20180508
  4. LUTETIUM (LU 177) [Concomitant]
     Active Substance: LUTETIUM LU-177
     Indication: PRODUCT USED FOR UNKNOWN INDICATION
     Dosage: UNK
     Route: 065
  5. SANDOSTATIN LAR DEPOT [Suspect]
     Active Substance: OCTREOTIDE ACETATE
     Indication: NEUROENDOCRINE TUMOUR
     Dosage: 60 MG, QMO (EVERY 4 WEEKS)
     Route: 030
     Dates: start: 20131128
  6. METOPROLOL. [Suspect]
     Active Substance: METOPROLOL
     Dosage: 100 MG, BID
     Route: 065
  7. OXYCODONE [Concomitant]
     Active Substance: OXYCODONE
     Indication: PAIN
     Dosage: 5 MG, Q4H (EVERY 4 HOURS)
     Route: 048
     Dates: start: 201612
  8. SANDOSTATIN LAR DEPOT [Suspect]
     Active Substance: OCTREOTIDE ACETATE
     Dosage: 40 MG, QMO (EVERY 4 WEEKS)
     Route: 030
  9. METOPROLOL. [Suspect]
     Active Substance: METOPROLOL
     Indication: BLOOD PRESSURE MEASUREMENT
     Dosage: 50 MG, BID
     Route: 065
  10. AMLODIPINE [Suspect]
     Active Substance: AMLODIPINE BESYLATE
     Indication: HYPERTENSION
     Dosage: 5 MG, UNK
     Route: 065
  11. TERAZOSIN HCL [Concomitant]
     Active Substance: TERAZOSIN HYDROCHLORIDE
     Indication: PRODUCT USED FOR UNKNOWN INDICATION
     Dosage: 2 MG, QHS
     Route: 065
     Dates: start: 20180417
  12. AMLODIPINE [Suspect]
     Active Substance: AMLODIPINE BESYLATE
     Dosage: UNK
     Route: 065
     Dates: start: 201804
  13. XARELTO [Concomitant]
     Active Substance: RIVAROXABAN
     Indication: PRODUCT USED FOR UNKNOWN INDICATION
     Dosage: 10 MG, QD, FOR 35 DAYS
     Route: 065
     Dates: start: 20161221
  14. DUTASTERIDE. [Concomitant]
     Active Substance: DUTASTERIDE
     Dosage: 0.5 MG, QD
     Route: 065
     Dates: start: 201708
  15. SANDOSTATIN LAR DEPOT [Suspect]
     Active Substance: OCTREOTIDE ACETATE
     Dosage: 40 MG, QMO (EVERY 4 WEEKS)
     Route: 030
     Dates: start: 20140731, end: 20170428
  16. SANDOSTATIN LAR DEPOT [Suspect]
     Active Substance: OCTREOTIDE ACETATE
     Dosage: 60 MG, QMO (EVERY 4 WEEKS)
     Route: 030
     Dates: start: 20170526
  17. AMLODIPINE [Suspect]
     Active Substance: AMLODIPINE BESYLATE
     Dosage: 5 MG, UNK
     Route: 065
     Dates: start: 20140226
  18. ATENOLOL. [Suspect]
     Active Substance: ATENOLOL
     Indication: PRODUCT USED FOR UNKNOWN INDICATION
     Dosage: 25 MG, QD
     Route: 065
  19. AMLODIPINE [Suspect]
     Active Substance: AMLODIPINE BESYLATE
     Dosage: 5 MG, UNK
     Route: 065
     Dates: start: 20140225
  20. DUTASTERIDE. [Concomitant]
     Active Substance: DUTASTERIDE
     Indication: BENIGN PROSTATIC HYPERPLASIA
     Dosage: 0.5 MG, QD
     Route: 048
     Dates: start: 20171012

REACTIONS (39)
  - Blood pressure increased [Unknown]
  - Blood pressure systolic increased [Unknown]
  - Anxiety [Unknown]
  - Myalgia [Recovered/Resolved]
  - Laryngeal oedema [Unknown]
  - Burning sensation [Unknown]
  - Pyrexia [Unknown]
  - Blood bilirubin increased [Unknown]
  - Exostosis [Unknown]
  - Prostatomegaly [Unknown]
  - Blood chromogranin A increased [Unknown]
  - 5-hydroxyindolacetic acid in urine increased [Unknown]
  - Bladder pain [Unknown]
  - Diarrhoea [Recovering/Resolving]
  - Dyspnoea [Recovered/Resolved]
  - Metastases to liver [Unknown]
  - Body temperature decreased [Unknown]
  - Feeling hot [Recovered/Resolved]
  - Nasal congestion [Unknown]
  - Constipation [Recovering/Resolving]
  - Headache [Unknown]
  - Asthma [Unknown]
  - Wheezing [Unknown]
  - Drug hypersensitivity [Unknown]
  - Procedural pain [Unknown]
  - Nasopharyngitis [Recovering/Resolving]
  - Cystitis [Recovered/Resolved]
  - Myalgia [Unknown]
  - Respiratory disorder [Unknown]
  - Laryngospasm [Unknown]
  - Blood glucose increased [Unknown]
  - Inappropriate schedule of drug administration [Unknown]
  - Dysphagia [Recovered/Resolved]
  - Malignant neoplasm progression [Unknown]
  - Prostatic specific antigen increased [Unknown]
  - Injection site pain [Unknown]
  - Dysuria [Unknown]
  - Rash [Unknown]
  - Heart rate decreased [Recovered/Resolved]

NARRATIVE: CASE EVENT DATE: 20140225
